FAERS Safety Report 9408682 (Version 2)
Quarter: 2013Q3

REPORT INFORMATION
  Report Type: Spontaneous
  Country: US (occurrence: None)
  Receive Date: 20130716
  Receipt Date: 20130723
  Transmission Date: 20140515
  Serious: Yes (Hospitalization)
  Sender: FDA-Public Use
  Company Number: AUR-APL-2013-05843

PATIENT
  Age: 51 Year
  Sex: Male
  Weight: 85 kg

DRUGS (3)
  1. LISINOPRIL [Suspect]
     Indication: PRODUCT USED FOR UNKNOWN INDICATION
     Dosage: 27 DOSAGE FORMS, UNKNOWN
  2. HYDROCODONE BITARTRATE AND ACETAMINOPHEN (VICODIN) [Concomitant]
  3. ALPRAZOLAM (ALPRAZOLAM) [Concomitant]

REACTIONS (26)
  - Somnolence [None]
  - Incoherent [None]
  - Hallucination, visual [None]
  - Dysarthria [None]
  - Metabolic acidosis [None]
  - Renal failure acute [None]
  - Hyperkalaemia [None]
  - Rhabdomyolysis [None]
  - Haemodialysis [None]
  - Confusional state [None]
  - Electrolyte imbalance [None]
  - Overdose [None]
  - Multi-organ disorder [None]
  - Stress [None]
  - Abnormal behaviour [None]
  - Coma scale abnormal [None]
  - Lethargy [None]
  - Disorientation [None]
  - Blood pressure systolic increased [None]
  - Oxygen saturation decreased [None]
  - Blood glucose increased [None]
  - Heart rate decreased [None]
  - Electrocardiogram T wave peaked [None]
  - Electrocardiogram P wave abnormal [None]
  - Electrocardiogram QRS complex prolonged [None]
  - Uraemic encephalopathy [None]
